FAERS Safety Report 24625307 (Version 2)
Quarter: 2024Q4

REPORT INFORMATION
  Report Type: Spontaneous
  Country: US (occurrence: US)
  Receive Date: 20241115
  Receipt Date: 20241122
  Transmission Date: 20250114
  Serious: Yes (Life-Threatening, Hospitalization, Other)
  Sender: BAUSCH AND LOMB
  Company Number: US-MLMSERVICE-20241106-PI248786-00117-1

PATIENT
  Age: 53 Year
  Sex: Male

DRUGS (4)
  1. DEXAMETHASONE [Suspect]
     Active Substance: DEXAMETHASONE
     Indication: COVID-19
     Route: 065
  2. REMDESIVIR [Concomitant]
     Active Substance: REMDESIVIR
     Indication: COVID-19
     Route: 042
  3. REMDESIVIR [Concomitant]
     Active Substance: REMDESIVIR
     Route: 042
  4. OXYGEN [Concomitant]
     Active Substance: OXYGEN
     Indication: Hypoxia
     Dosage: HIGH-FLOW
     Route: 045

REACTIONS (1)
  - Pneumonia cryptococcal [Recovering/Resolving]
